FAERS Safety Report 9771263 (Version 2)
Quarter: 2014Q1

REPORT INFORMATION
  Report Type: Spontaneous
  Country: US (occurrence: US)
  Receive Date: 20131218
  Receipt Date: 20140211
  Transmission Date: 20141002
  Serious: Yes (Hospitalization, Other)
  Sender: FDA-Public Use
  Company Number: US-B.I. PHARMACEUTICALS,INC./RIDGEFIELD-2013-BI-41834BP

PATIENT
  Age: 59 Year
  Sex: Female
  Weight: 107 kg

DRUGS (27)
  1. COMBIVENT [Suspect]
     Indication: EMPHYSEMA
     Route: 055
     Dates: start: 1999
  2. OXYGEN [Concomitant]
     Dates: start: 2003
  3. ALBUTEROL (PROVENT1L) [Concomitant]
     Route: 055
  4. BUDESONIDE(PULMICORT) [Concomitant]
     Route: 055
  5. CALCIUM CARBONATE/VITAMIN D3(CALCIUM 600 + D,3, ORAL) [Concomitant]
  6. CHOLECALCIFEROL, VITAMIN D3 [Concomitant]
     Route: 048
  7. FORMOTEROL (PERFOROMIST) [Concomitant]
  8. FUROSEMIDE (LASIX) [Concomitant]
     Dosage: 40 MG
     Route: 048
  9. GABAPENTIN (NEURONTIN) [Concomitant]
     Route: 048
  10. INSULIN GLARGINE (LANTUS SOLOSTAR) [Concomitant]
     Route: 058
  11. INSULIN LISPRO (HUMALOG KW1KPEN) [Concomitant]
  12. IPRATROPIUM-AIBLITEROL(COMBIVENT RESPIMAT) [Concomitant]
     Route: 055
  13. LOSARTAN (COZAAR) 100 MG [Concomitant]
     Dosage: 100 MG
     Route: 048
  14. METOPROLOL (TOPROL XL) [Concomitant]
     Dosage: 25 MG
     Route: 048
  15. NYSTATIN (MYCOSTATIN) [Concomitant]
  16. NYSTATIN-TRIAMCINOLOFLE(MYCOLOG IL) [Concomitant]
  17. OMEGA-3 ACID ETHYL ESTERS(LOVAZA) [Concomitant]
     Dosage: 4 G
     Route: 048
  18. PANTOPRAZOLE(PROTONIX) [Concomitant]
     Dosage: 40 MG
     Route: 048
  19. POTASSIUM CHLORIDE (KLOR- CON 10) [Concomitant]
     Dosage: DOSE PER APPLICATION:10 MEQ CR TABLET
     Route: 048
  20. SUCRALFATE (CARAFATE) [Concomitant]
  21. ZETIA [Concomitant]
     Dosage: 10 MG
  22. ALBUTEROL- IPRATROPIUM (COMBIVENT) [Concomitant]
     Route: 055
  23. CYANOCOBALAMIN(VITAMIN B-12) [Concomitant]
     Dosage: 1000 MCG
     Route: 048
  24. GABAPENTIN(NEURONTIN) [Concomitant]
     Dosage: 600 MG
     Route: 048
  25. LANSOPRAZOLE(PREVACID) [Concomitant]
     Dosage: 30 MG
     Route: 048
  26. ROSUVASTATIN(CRESTOR) [Concomitant]
     Dosage: 20 MG
     Route: 048
  27. TROSPIUM 60 MG CP24 [Concomitant]
     Dosage: 60 MG
     Route: 048

REACTIONS (7)
  - Lung neoplasm malignant [Recovered/Resolved]
  - Cardiac failure congestive [Not Recovered/Not Resolved]
  - Type 2 diabetes mellitus [Not Recovered/Not Resolved]
  - Heart rate increased [Not Recovered/Not Resolved]
  - Heart rate irregular [Not Recovered/Not Resolved]
  - Cardiac valve disease [Not Recovered/Not Resolved]
  - Diabetic neuropathy [Not Recovered/Not Resolved]
